FAERS Safety Report 8485865-9 (Version None)
Quarter: 2012Q3

REPORT INFORMATION
  Report Type: 
  Country: None (occurrence: None)
  Receive Date: 20120703
  Receipt Date: 20120627
  Transmission Date: 20120928
  Serious: Yes (Hospitalization)
  Sender: FDA-Public Use
  Company Number: PHHY2012AU029554

PATIENT
  Sex: Female

DRUGS (2)
  1. VITAMIN D [Concomitant]
     Indication: MULTIPLE SCLEROSIS
     Dosage: 1000 IU, UNK
     Route: 048
  2. GILENYA [Suspect]
     Indication: MULTIPLE SCLEROSIS
     Dosage: 0.5 MG, QD
     Route: 048
     Dates: start: 20110501

REACTIONS (3)
  - ABDOMINAL ADHESIONS [None]
  - PAIN [None]
  - MUSCLE SPASMS [None]
